FAERS Safety Report 6883897-5 (Version None)
Quarter: 2010Q3

REPORT INFORMATION
  Report Type: 
  Country: None (occurrence: None)
  Receive Date: 20100729
  Receipt Date: 20100713
  Transmission Date: 20110219
  Serious: No
  Sender: FDA-Public Use
  Company Number: US-B.I. PHARMACEUTICALS,INC./RIDGEFIELD-2010-BP-07910BP

PATIENT
  Sex: Male

DRUGS (1)
  1. MIRAPEX [Suspect]

REACTIONS (2)
  - ABDOMINAL DISCOMFORT [None]
  - VOMITING [None]
